FAERS Safety Report 7361292-2 (Version None)
Quarter: 2011Q1

REPORT INFORMATION
  Report Type: 
  Country: None (occurrence: None)
  Receive Date: 20110318
  Receipt Date: 20110310
  Transmission Date: 20110831
  Serious: Yes (Hospitalization)
  Sender: FDA-Public Use
  Company Number: A0893086A

PATIENT
  Age: 61 Year
  Sex: Female
  Weight: 63.6 kg

DRUGS (10)
  1. AVANDIA [Suspect]
     Dosage: 2MG TWICE PER DAY
     Route: 048
     Dates: start: 20050401, end: 20060901
  2. EVISTA [Concomitant]
  3. AVANDAMET [Suspect]
     Route: 048
     Dates: start: 20030301
  4. BENTYL [Concomitant]
  5. QUINAPRIL [Concomitant]
  6. LORAZEPAM [Concomitant]
  7. ASACOL [Concomitant]
  8. LUNESTA [Concomitant]
  9. VYTORIN [Concomitant]
  10. LEVOXYL [Concomitant]

REACTIONS (3)
  - MACULAR OEDEMA [None]
  - ANGINA PECTORIS [None]
  - ARTERIOSCLEROSIS CORONARY ARTERY [None]
